FAERS Safety Report 8327679-6 (Version None)
Quarter: 2012Q2

REPORT INFORMATION
  Report Type: 
  Country: None (occurrence: None)
  Receive Date: 20120502
  Receipt Date: 20120418
  Transmission Date: 20120825
  Serious: Yes (Other)
  Sender: FDA-Public Use
  Company Number: CN-JNJFOC-20110500738

PATIENT
  Sex: Female

DRUGS (2)
  1. RISPERDAL CONSTA [Suspect]
     Indication: SCHIZOPHRENIA
     Route: 030
     Dates: start: 20090506, end: 20110323
  2. OLANZAPINE [Suspect]
     Indication: SCHIZOPHRENIA
     Route: 065
     Dates: end: 20090101

REACTIONS (2)
  - OVARIAN FAILURE [None]
  - HYPERPROLACTINAEMIA [None]
